FAERS Safety Report 25472687 (Version 5)
Quarter: 2025Q3

REPORT INFORMATION
  Report Type: Spontaneous
  Country: EU (occurrence: EU)
  Receive Date: 20250624
  Receipt Date: 20250725
  Transmission Date: 20251020
  Serious: Yes (Hospitalization, Other)
  Sender: AUROBINDO
  Company Number: EU-PFIZER INC-PV202500069597

PATIENT
  Age: 58 Year
  Sex: Female

DRUGS (3)
  1. LINEZOLID [Suspect]
     Active Substance: LINEZOLID
     Indication: Device related bacteraemia
     Route: 065
     Dates: start: 20240801, end: 202408
  2. LINEZOLID [Suspect]
     Active Substance: LINEZOLID
     Indication: Staphylococcal bacteraemia
  3. LINEZOLID [Suspect]
     Active Substance: LINEZOLID
     Indication: Device related infection

REACTIONS (4)
  - Lactic acidosis [Recovering/Resolving]
  - Metabolic acidosis [Recovering/Resolving]
  - Respiratory alkalosis [Recovering/Resolving]
  - Hyperlactacidaemia [Recovered/Resolved]

NARRATIVE: CASE EVENT DATE: 20240801
